FAERS Safety Report 7860681-7 (Version None)
Quarter: 2011Q4

REPORT INFORMATION
  Report Type: 
  Country: None (occurrence: None)
  Receive Date: 20111027
  Receipt Date: 20111017
  Transmission Date: 20120403
  Serious: No
  Sender: FDA-Public Use
  Company Number: US-B.I. PHARMACEUTICALS,INC./RIDGEFIELD-2011-BP-24580BP

PATIENT
  Sex: Male

DRUGS (4)
  1. DIAZEPAM [Concomitant]
     Indication: MUSCLE SPASMS
  2. SPIRIVA [Suspect]
     Indication: ASTHMA
     Dosage: 36 MCG
     Route: 055
     Dates: start: 20111010, end: 20111013
  3. SINGULAIR [Concomitant]
     Indication: SEASONAL ALLERGY
  4. VITANMIN D [Concomitant]
     Indication: BACK PAIN

REACTIONS (2)
  - NASAL DRYNESS [None]
  - OROPHARYNGEAL PAIN [None]
